FAERS Safety Report 18225726 (Version 1)
Quarter: 2020Q3

REPORT INFORMATION
  Report Type: Report from Study
  Country: None (occurrence: US)
  Receive Date: 20200903
  Receipt Date: 20200903
  Transmission Date: 20201103
  Serious: Yes (Hospitalization)
  Sender: FDA-Public Use
  Company Number: US-ABBVIE-20K-163-3549035-00

PATIENT
  Sex: Male
  Weight: 80.36 kg

DRUGS (1)
  1. CREON [Suspect]
     Active Substance: PANCRELIPASE AMYLASE\PANCRELIPASE LIPASE\PANCRELIPASE PROTEASE
     Indication: PANCREATIC CARCINOMA
     Dosage: 2 CAPSULE WITH MEALS
     Route: 048
     Dates: start: 2009

REACTIONS (5)
  - Abdominal adhesions [Recovering/Resolving]
  - Blood count abnormal [Recovering/Resolving]
  - Radiation hepatitis [Recovering/Resolving]
  - Platelet count decreased [Recovering/Resolving]
  - Blood bilirubin increased [Recovering/Resolving]

NARRATIVE: CASE EVENT DATE: 2009
